FAERS Safety Report 17459292 (Version 1)
Quarter: 2020Q1

REPORT INFORMATION
  Report Type: Spontaneous
  Country: JP (occurrence: JP)
  Receive Date: 20200226
  Receipt Date: 20200226
  Transmission Date: 20200409
  Serious: Yes (Hospitalization)
  Sender: FDA-Public Use
  Company Number: JP-TEVA-2020-JP-1190040

PATIENT
  Age: 78 Year
  Sex: Male

DRUGS (4)
  1. CLOPIDOGREL [Suspect]
     Active Substance: CLOPIDOGREL BISULFATE
     Route: 065
  2. IA-CALL [Suspect]
     Active Substance: CISPLATIN
     Indication: HEPATOCELLULAR CARCINOMA
     Dosage: SEE NARRATIVE
     Route: 013
  3. ASPIRIN. [Suspect]
     Active Substance: ASPIRIN
     Dosage: LOW DOSE
     Route: 065
  4. SALINE [Concomitant]
     Active Substance: SODIUM CHLORIDE
     Indication: VEHICLE SOLUTION USE
     Dosage: SEE NARRATIVE
     Route: 013

REACTIONS (2)
  - Colitis [Recovered/Resolved]
  - Haematochezia [Recovered/Resolved]
